FAERS Safety Report 4608857-6 (Version None)
Quarter: 2005Q1

REPORT INFORMATION
  Report Type: 
  Country: None (occurrence: None)
  Receive Date: 20050311
  Receipt Date: 20050302
  Transmission Date: 20050727
  Serious: Yes (Hospitalization)
  Sender: FDA-Public Use
  Company Number: 2005039751

PATIENT
  Age: 83 Year
  Sex: Female

DRUGS (12)
  1. NEURONTIN [Suspect]
     Indication: HERPES ZOSTER
     Dosage: THREE TIMES DAILY, ORAL
     Route: 048
     Dates: start: 20050216, end: 20050221
  2. FUROSEMIDE [Concomitant]
  3. DIGOXIN [Concomitant]
  4. AMLODIPINE BESYLATE [Concomitant]
  5. WARFARIN SODIUM [Concomitant]
  6. ISOSORBIDE DINITRATE [Concomitant]
  7. VALSARTAN [Concomitant]
  8. CALCIUM CARBONATE (CALCIUM CARBONATE) [Concomitant]
  9. SELEGILINE HYDROCHLORIDE (SELEGILINE HYDROCHLORIDE) [Concomitant]
  10. RISEDRONATE SODIUM (RISEDRONATE SODIUM) [Concomitant]
  11. ASASANTIN (ACETYLSALICYLIC ACID, DIPYRIDAMOLE) [Concomitant]
  12. ACEBUTOLOL HCL [Concomitant]

REACTIONS (4)
  - FAECAL INCONTINENCE [None]
  - LOSS OF CONSCIOUSNESS [None]
  - OEDEMA PERIPHERAL [None]
  - VOMITING [None]
